FAERS Safety Report 5071459-4 (Version None)
Quarter: 2006Q3

REPORT INFORMATION
  Report Type: 
  Country: None (occurrence: None)
  Receive Date: 20060804
  Receipt Date: 20060803
  Transmission Date: 20061208
  Serious: Yes (Disabling, Other)
  Sender: FDA-Public Use
  Company Number: US-GLAXOSMITHKLINE-A0615064A

PATIENT
  Age: 31 Year
  Sex: Male

DRUGS (5)
  1. LAMICTAL [Suspect]
     Indication: CONVULSION
     Dosage: 100MG TWICE PER DAY
     Route: 048
     Dates: start: 20051001
  2. VENLAFAXINE HCL [Concomitant]
  3. TOPIRAMATE [Concomitant]
  4. DIVALPROEX [Concomitant]
  5. ALENDRONATE SODIUM [Concomitant]

REACTIONS (3)
  - ALTERED VISUAL DEPTH PERCEPTION [None]
  - CATARACT [None]
  - VISUAL ACUITY REDUCED [None]
